FAERS Safety Report 9904992 (Version 1)
Quarter: 2013Q2

REPORT INFORMATION
  Report Type: Spontaneous
  Country: US (occurrence: None)
  Receive Date: 20130305
  Receipt Date: 20130305
  Transmission Date: 20140414
  Serious: Yes (Disabling)
  Sender: FDA-Public Use
  Company Number: 163-21880-12041893

PATIENT
  Age: 74 Year
  Sex: Female
  Weight: 56.7 kg

DRUGS (11)
  1. REVLIMID [Suspect]
     Indication: PLASMA CELL MYELOMA
     Dosage: 5 MG, DAILY X 28 DAYS, PO
     Route: 048
     Dates: start: 20120309, end: 20120505
  2. POTASSIUM (POTASSIUM) (UNKNOWN) [Concomitant]
  3. MAGNESIUM (MAGNESIUM) (UNKNOWN) [Concomitant]
  4. PROTONIX (PANTOPRAZOLE) (UNKNOWN) [Concomitant]
  5. DAPSONE (DAPSONE) (UNKNOWN) [Concomitant]
  6. COUMADIN (WARFARIN SODIUM) (UNKNOWN) [Concomitant]
  7. CARDIZEM (DILTIAZEM HYDROCHLORIDE) (UNKNOWN) [Concomitant]
  8. ACYCLOVIR (ACICLOVIR) (UNKNOWN) [Concomitant]
  9. LOVENOX (HEPARIN-FRACTION, SODIUM SALT) (UNKNOWN) [Concomitant]
  10. OXYCODONE (OXYCODONE) (UNKNOWN) (OXYCODONE) [Concomitant]
  11. DURAGESIC (FENTANYL) (UNKNOWN) [Concomitant]

REACTIONS (3)
  - Nausea [None]
  - Dry mouth [None]
  - Constipation [None]
